FAERS Safety Report 18035276 (Version 2)
Quarter: 2020Q3

REPORT INFORMATION
  Report Type: Report from Study
  Country: None (occurrence: SI)
  Receive Date: 20200717
  Receipt Date: 20200805
  Transmission Date: 20201103
  Serious: Yes (Hospitalization, Other)
  Sender: FDA-Public Use
  Company Number: SI-ABBVIE-20K-261-3484722-00

PATIENT
  Age: 60 Year
  Sex: Female
  Weight: 70 kg

DRUGS (6)
  1. DUODOPA [Suspect]
     Active Substance: CARBIDOPA\LEVODOPA
     Indication: PARKINSON^S DISEASE
     Route: 050
     Dates: start: 2017
  2. DUODOPA [Suspect]
     Active Substance: CARBIDOPA\LEVODOPA
  3. LEPONEX [Concomitant]
     Active Substance: CLOZAPINE
     Indication: PRODUCT USED FOR UNKNOWN INDICATION
  4. LEXAURIN [Concomitant]
     Active Substance: BROMAZEPAM
     Indication: PRODUCT USED FOR UNKNOWN INDICATION
  5. NOLPAZA [Concomitant]
     Active Substance: PANTOPRAZOLE SODIUM
     Indication: PRODUCT USED FOR UNKNOWN INDICATION
  6. LEPONEX [Concomitant]
     Active Substance: CLOZAPINE
     Indication: PRODUCT USED FOR UNKNOWN INDICATION

REACTIONS (3)
  - Stoma site infection [Recovered/Resolved]
  - Pain [Recovered/Resolved]
  - Spinal operation [Unknown]

NARRATIVE: CASE EVENT DATE: 20200701
